FAERS Safety Report 9988197 (Version 1)
Quarter: 2014Q1

REPORT INFORMATION
  Report Type: Report from Study
  Country: BR (occurrence: BR)
  Receive Date: 20140309
  Receipt Date: 20140309
  Transmission Date: 20141002
  Serious: Yes (Other)
  Sender: FDA-Public Use
  Company Number: PHHY2014BR024583

PATIENT
  Age: 30 Year
  Sex: Female
  Weight: 70.8 kg

DRUGS (2)
  1. SANDOSTATIN LAR [Suspect]
     Indication: ACROMEGALY
     Dosage: 20 MG, 1 INJECTION EVERY 28 DAYS
     Dates: start: 201309, end: 201310
  2. SANDOSTATIN LAR [Suspect]
     Dosage: 30 MG, 1 INJECTION EVERY 28 DAYS
     Dates: start: 201311

REACTIONS (3)
  - Multiple endocrine neoplasia Type 1 [Unknown]
  - Parathyroid disorder [Unknown]
  - Diabetes mellitus [Unknown]
